FAERS Safety Report 6127436-5 (Version None)
Quarter: 2009Q1

REPORT INFORMATION
  Report Type: 
  Country: None (occurrence: None)
  Receive Date: 20090323
  Receipt Date: 20090310
  Transmission Date: 20090719
  Serious: Yes (Hospitalization)
  Sender: FDA-Public Use
  Company Number: DE-TEVA-187922ISR

PATIENT
  Age: 65 Year
  Sex: Female

DRUGS (2)
  1. RAMIPRIL [Suspect]
     Indication: HYPERTENSION
     Route: 048
  2. CIPROFLOXACIN [Interacting]
     Indication: GASTROENTERITIS
     Route: 048
     Dates: end: 20090110

REACTIONS (1)
  - ATRIAL FIBRILLATION [None]
